FAERS Safety Report 10978331 (Version 1)
Quarter: 2015Q2

REPORT INFORMATION
  Report Type: Spontaneous
  Country: US (occurrence: US)
  Receive Date: 20150402
  Receipt Date: 20150402
  Transmission Date: 20150821
  Serious: Yes (Life-Threatening, Hospitalization, Disabling, Other)
  Sender: FDA-Public Use
  Company Number: US-ABBVIE-12P-163-0903338-00

PATIENT
  Age: 49 Year
  Sex: Female

DRUGS (1)
  1. HUMIRA [Suspect]
     Active Substance: ADALIMUMAB
     Indication: PSORIASIS
     Route: 065
     Dates: start: 200811, end: 200904

REACTIONS (21)
  - Cardio-respiratory arrest [Recovered/Resolved]
  - Pain [Unknown]
  - Depression [Not Recovered/Not Resolved]
  - Mass [Unknown]
  - Postoperative respiratory distress [Recovered/Resolved]
  - Lymphatic disorder [Unknown]
  - Scar [Unknown]
  - Neuroma [Unknown]
  - Lymphatic disorder [Not Recovered/Not Resolved]
  - Squamous cell carcinoma of the tongue [Unknown]
  - Fatigue [Not Recovered/Not Resolved]
  - Disability [Unknown]
  - Dysphagia [Unknown]
  - Seizure like phenomena [Unknown]
  - Hemiparesis [Unknown]
  - Joint range of motion decreased [Unknown]
  - Hearing impaired [Unknown]
  - Speech disorder [Not Recovered/Not Resolved]
  - Post procedural complication [Not Recovered/Not Resolved]
  - Radical neck dissection [Not Recovered/Not Resolved]
  - Neck pain [Unknown]

NARRATIVE: CASE EVENT DATE: 20090416
